FAERS Safety Report 11540611 (Version 1)
Quarter: 2015Q3

REPORT INFORMATION
  Report Type: Spontaneous
  Country: US (occurrence: US)
  Receive Date: 20150923
  Receipt Date: 20150923
  Transmission Date: 20151125
  Serious: No
  Sender: FDA-Public Use
  Company Number: US-BEH-2015051008

PATIENT
  Age: 54 Year
  Sex: Female
  Weight: 55.3 kg

DRUGS (40)
  1. ALLERGY SHOTS [Concomitant]
     Active Substance: UNSPECIFIED INGREDIENT
     Dosage: 1 INJ UD
     Route: 058
  2. MACROBID [Concomitant]
     Active Substance: NITROFURANTOIN\NITROFURANTOIN MONOHYDRATE
     Dosage: 1 CAP DAILY
     Route: 061
  3. CYANOCOBALAMIN. [Concomitant]
     Active Substance: CYANOCOBALAMIN
     Dosage: 500 MCG QW
     Route: 060
  4. ENDOCET [Concomitant]
     Active Substance: ACETAMINOPHEN\OXYCODONE HYDROCHLORIDE
     Dosage: 1 TAB Q6H, 40-1300 MG
     Route: 048
  5. HYOMAX [Concomitant]
     Active Substance: HYOSCYAMINE SULFATE
     Dosage: 1 TAB UD
     Route: 048
  6. DIPHENHYDRAMINE. [Concomitant]
     Active Substance: DIPHENHYDRAMINE
     Dosage: 25 MG UD
     Route: 048
  7. MAGNESIUM CITRATE SOLUTION [Concomitant]
     Dosage: 1 ML BID
     Route: 048
  8. ESTRADIOL. [Concomitant]
     Active Substance: ESTRADIOL
     Dosage: 0.05 MG/DAY PATCH
     Route: 061
  9. PRIVIGEN [Suspect]
     Active Substance: HUMAN IMMUNOGLOBULIN G
     Dosage: 10 GM VIAL; 30 GM EVERY 3 WEEKS
     Route: 042
  10. PRIVIGEN [Suspect]
     Active Substance: HUMAN IMMUNOGLOBULIN G
     Dosage: 20 GM VIAL; 30 GM EVERY 3 WEEKS
     Route: 042
  11. PROGESTERONE POWDER [Concomitant]
     Dosage: 1 DOSE UD
  12. BENADRYL [Concomitant]
     Active Substance: DIPHENHYDRAMINE HYDROCHLORIDE
     Dosage: 1 CAP Q4-6H
     Route: 048
  13. CVS PROBIOTIC CAPSULE [Concomitant]
     Dosage: 3 CAPS DAILY
     Route: 048
  14. DILAUDID [Concomitant]
     Active Substance: HYDROMORPHONE HYDROCHLORIDE
     Dosage: 1 TAB Q6H
     Route: 048
  15. L-M-X [Concomitant]
     Indication: PREMEDICATION
     Dosage: 4 % PRIOR
     Route: 061
  16. HERBAL NOS [Concomitant]
     Active Substance: HERBALS
  17. LIDOCAINE. [Concomitant]
     Active Substance: LIDOCAINE
     Dosage: 5 % DAILY
     Route: 061
  18. ESTRACE [Concomitant]
     Active Substance: ESTRADIOL
     Dosage: 0.01% DAILY
     Route: 061
  19. CVS VITAMIN D3 [Concomitant]
     Dosage: 1 CAP DAILY
     Route: 048
  20. ZANAFLEX [Concomitant]
     Active Substance: TIZANIDINE HYDROCHLORIDE
     Dosage: 1 CAP QID
     Route: 048
  21. SODIUM CHLORIDE. [Concomitant]
     Active Substance: SODIUM CHLORIDE
     Dosage: 1-50 ML
     Route: 042
  22. CLARITHROMYCIN. [Concomitant]
     Active Substance: CLARITHROMYCIN
     Dosage: 1 DOSE UD
     Route: 048
  23. VICKS DAYQUIL-NYQUIL [Concomitant]
     Dosage: 1 DOSE UD
     Route: 048
  24. PROMETHAZINE [Concomitant]
     Active Substance: PROMETHAZINE\PROMETHAZINE HYDROCHLORIDE
     Dosage: 1 CAP TID
     Route: 048
  25. SERTRALINE [Concomitant]
     Active Substance: SERTRALINE HYDROCHLORIDE
  26. PRIVIGEN [Suspect]
     Active Substance: HUMAN IMMUNOGLOBULIN G
     Route: 042
  27. PRIVIGEN [Suspect]
     Active Substance: HUMAN IMMUNOGLOBULIN G
     Indication: IMMUNODEFICIENCY
     Route: 042
  28. LIDODERM [Concomitant]
     Active Substance: LIDOCAINE
     Dosage: 1 PATCH DAILY
     Route: 061
  29. MELATONIN [Concomitant]
     Active Substance: MELATONIN
     Dosage: 9 MG QPM
     Route: 048
  30. MACROBID [Concomitant]
     Active Substance: NITROFURANTOIN\NITROFURANTOIN MONOHYDRATE
     Route: 048
  31. EPIPEN AUTOINJECTOR [Concomitant]
     Indication: ANAPHYLACTIC REACTION
     Dosage: PRN FOR ANA
     Route: 030
  32. XANAX [Concomitant]
     Active Substance: ALPRAZOLAM
     Dosage: 1 DOSE PRN
     Route: 048
  33. ALGAECAL HERBAL [Concomitant]
     Indication: OSTEOPOROSIS
     Dosage: 2 QAM AND 2 QPM; 4 DOSES
     Route: 048
  34. STRONTIUM 3 [Concomitant]
     Dosage: 1 DOSE DAILY
     Route: 048
  35. VALIUM [Concomitant]
     Active Substance: DIAZEPAM
     Dosage: 1 TAB BID
     Route: 048
  36. MIRALAX [Concomitant]
     Active Substance: POLYETHYLENE GLYCOL 3350
     Dosage: 17 GM Q2-3 D
     Route: 048
  37. AMBIEN [Concomitant]
     Active Substance: ZOLPIDEM TARTRATE
     Dosage: AMBIEN CR 12.5 MG; 1 TAB QPM
     Route: 048
  38. IBUPROFEN. [Concomitant]
     Active Substance: IBUPROFEN
     Dosage: UD
     Route: 048
  39. SYNTHROID [Concomitant]
     Active Substance: LEVOTHYROXINE SODIUM
     Dosage: 1 TAB DAILY, 25 MCG
     Route: 048
  40. SUDAFED [Concomitant]
     Active Substance: PSEUDOEPHEDRINE HYDROCHLORIDE
     Dosage: 1 TAB DAILY
     Route: 048

REACTIONS (1)
  - Urinary tract infection [Unknown]

NARRATIVE: CASE EVENT DATE: 20150430
